FAERS Safety Report 9878342 (Version 2)
Quarter: 2014Q2

REPORT INFORMATION
  Report Type: Spontaneous
  Country: US (occurrence: US)
  Receive Date: 20140206
  Receipt Date: 20140509
  Transmission Date: 20141212
  Serious: Yes (Death, Other)
  Sender: FDA-Public Use
  Company Number: US-BAYER-2014-016902

PATIENT
  Age: 48 Year
  Sex: Female

DRUGS (2)
  1. ALKA-SELTZER ORIGINAL [Suspect]
     Indication: ANALGESIC THERAPY
     Dosage: 1 DF, QID
     Route: 048
     Dates: start: 1947
  2. BAYER GENUINE ASPIRIN ORIGINAL STRENGTH [Suspect]
     Indication: ANALGESIC THERAPY
     Dosage: 2 DF, QID
     Route: 048
     Dates: start: 1947

REACTIONS (4)
  - Death [Fatal]
  - Wrong technique in drug usage process [None]
  - Drug dependence [Recovered/Resolved]
  - Therapeutic response changed [None]
